FAERS Safety Report 17690114 (Version 3)
Quarter: 2020Q2

REPORT INFORMATION
  Report Type: Spontaneous
  Country: FR (occurrence: FR)
  Receive Date: 20200421
  Receipt Date: 20200623
  Transmission Date: 20200714
  Serious: Yes (Other)
  Sender: FDA-Public Use
  Company Number: PT-SUNOVION-2020SUN001217

PATIENT

DRUGS (4)
  1. ZEBINIX [Suspect]
     Active Substance: ESLICARBAZEPINE ACETATE
     Dosage: 600 MILLIGRAM, DAILY (800 MG TABLETS WERE CUT IN 4 BY CUTTING IN TWO HALF TABLETS OF 400 MG)
     Route: 048
     Dates: start: 201807
  2. LOXAPAC [LOXAPINE] [Suspect]
     Active Substance: LOXAPINE
     Dosage: 12.5 MILLIGRAM, 2X / DAY (IN THE MORNING, IF AGITATION AND AT BEDTIME, IF INSOMNIA)
     Route: 048
     Dates: start: 20200311
  3. ZEBINIX [Suspect]
     Active Substance: ESLICARBAZEPINE ACETATE
     Indication: EPILEPSY
     Dosage: 800 MILLIGRAM, UNKNOWN
     Route: 048
     Dates: start: 201807
  4. LOXAPAC [LOXAPINE] [Suspect]
     Active Substance: LOXAPINE
     Indication: AGITATION
     Dosage: 12.5 MILLIGRAM, 3X / DAY (IN THE MORNING, IF AGITATION, AT BEDTIME, IF INSOMNIA AND DURING THE DAY,
     Route: 048
     Dates: start: 20200325

REACTIONS (2)
  - Off label use [Unknown]
  - Seizure [Unknown]

NARRATIVE: CASE EVENT DATE: 201807
